FAERS Safety Report 5818772-8 (Version None)
Quarter: 2008Q3

REPORT INFORMATION
  Report Type: 
  Country: None (occurrence: None)
  Receive Date: 20080723
  Receipt Date: 20080712
  Transmission Date: 20090109
  Serious: Yes (Hospitalization, Other)
  Sender: FDA-Public Use
  Company Number: US-BAYER-200822441GPV

PATIENT
  Age: 61 Year
  Sex: Male

DRUGS (6)
  1. FLUDARABINE PHOSPHATE [Suspect]
     Indication: BONE MARROW CONDITIONING REGIMEN
  2. IDARUBICIN HCL [Suspect]
     Indication: CHEMOTHERAPY
  3. CYTARABINE [Suspect]
     Indication: CHEMOTHERAPY
  4. BUSULFAN [Suspect]
     Indication: BONE MARROW CONDITIONING REGIMEN
  5. MELPHALAN [Suspect]
     Indication: BONE MARROW CONDITIONING REGIMEN
  6. RABBIT ANTITHYMOCYTE GLOBULIN [Suspect]
     Indication: BONE MARROW CONDITIONING REGIMEN

REACTIONS (4)
  - ACUTE GRAFT VERSUS HOST DISEASE IN INTESTINE [None]
  - DIARRHOEA [None]
  - EPSTEIN-BARR VIRAEMIA [None]
  - GUILLAIN-BARRE SYNDROME [None]
